FAERS Safety Report 6143916-0 (Version None)
Quarter: 2009Q2

REPORT INFORMATION
  Report Type: 
  Country: None (occurrence: None)
  Receive Date: 20090406
  Receipt Date: 20090331
  Transmission Date: 20091009
  Serious: Yes (Other)
  Sender: FDA-Public Use
  Company Number: US-PFIZER INC-2007062528

PATIENT
  Sex: Female
  Weight: 79 kg

DRUGS (2)
  1. BEXTRA [Suspect]
     Indication: PAIN
     Dates: start: 19330101
  2. BEXTRA [Suspect]
     Indication: SURGERY

REACTIONS (3)
  - ANXIETY [None]
  - DEPRESSION [None]
  - STEVENS-JOHNSON SYNDROME [None]
